FAERS Safety Report 18643144 (Version 2)
Quarter: 2021Q1

REPORT INFORMATION
  Report Type: Spontaneous
  Country: FR (occurrence: FR)
  Receive Date: 20201221
  Receipt Date: 20210222
  Transmission Date: 20210419
  Serious: Yes (Death, Hospitalization, Other)
  Sender: FDA-Public Use
  Company Number: FR-VELOXIS PHARMACEUTICALS-2020VELFR-001041

PATIENT
  Age: 5 Decade
  Sex: Male
  Weight: 44 kg

DRUGS (13)
  1. ENVARSUS XR [Suspect]
     Active Substance: TACROLIMUS
     Indication: PROPHYLAXIS AGAINST TRANSPLANT REJECTION
     Dosage: UNK
     Route: 065
     Dates: start: 2019, end: 2020
  2. INTERLEUKIN 1 RECEPTOR ANTAGONIST ANAKINRA [Concomitant]
     Indication: PRODUCT USED FOR UNKNOWN INDICATION
     Dosage: INITIATED ON DAY 10 OF SARS?COV?2 INFECTION DIAGNOSIS
     Route: 065
     Dates: start: 2020
  3. ENOXAPARIN [Concomitant]
     Active Substance: ENOXAPARIN
     Indication: PRODUCT USED FOR UNKNOWN INDICATION
     Dosage: INITIATED ON DAY 12 OF SARS?COV?2 INFECTION DIAGNOSIS
     Route: 065
     Dates: start: 2020
  4. RITUXIMAB. [Concomitant]
     Active Substance: RITUXIMAB
     Indication: PRODUCT USED FOR UNKNOWN INDICATION
     Dosage: UNK
     Route: 065
     Dates: start: 2019
  5. IL?6 BLOCKER TOCILIZUMAB [Concomitant]
     Indication: PRODUCT USED FOR UNKNOWN INDICATION
     Dosage: 8 MG/KG OF BODY WEIGHT, INITIATED ON DAY 16 OF SARS?COV?2 INFECTION DIAGNOSIS
     Route: 065
     Dates: start: 2020
  6. SULFAMETHOXAZOLE?TRIMETHOPRIM [Concomitant]
     Active Substance: SULFAMETHOXAZOLE\TRIMETHOPRIM
     Indication: PROPHYLAXIS
     Dosage: UNK
     Route: 065
     Dates: start: 2019, end: 2020
  7. ISAVUCONAZONIUM SULFATE [Suspect]
     Active Substance: ISAVUCONAZONIUM SULFATE
     Indication: PROPHYLAXIS
     Dosage: UNK
     Route: 065
     Dates: start: 2019, end: 2020
  8. REMDESIVIR. [Concomitant]
     Active Substance: REMDESIVIR
     Indication: PRODUCT USED FOR UNKNOWN INDICATION
     Dosage: 200 MG, THEN 100 MG
     Route: 042
     Dates: start: 2020, end: 2020
  9. PIPERACILIN?TAZOBACTAM [Concomitant]
     Indication: PRODUCT USED FOR UNKNOWN INDICATION
     Dosage: UNK
     Route: 065
     Dates: start: 2020
  10. MYCOPHENOLATE MOFETIL. [Concomitant]
     Active Substance: MYCOPHENOLATE MOFETIL
     Indication: PROPHYLAXIS AGAINST TRANSPLANT REJECTION
     Dosage: UNK
     Route: 065
     Dates: start: 2019, end: 2020
  11. AMOXICILIN?CLAVULANIC ACID [Concomitant]
     Indication: PROPHYLAXIS
     Dosage: UNK
     Route: 065
     Dates: start: 2020, end: 2020
  12. VALGANCICLOVIR. [Concomitant]
     Active Substance: VALGANCICLOVIR
     Indication: PROPHYLAXIS
     Dosage: UNK
     Route: 065
     Dates: start: 2019, end: 2020
  13. DEXAMETHASONE. [Concomitant]
     Active Substance: DEXAMETHASONE
     Indication: PRODUCT USED FOR UNKNOWN INDICATION
     Dosage: 20 MG EVERY 24 HOURS INITIATED ON DAY 7 OF SARS?COV?2 INFECTION DIAGNOSIS
     Route: 065
     Dates: start: 2020

REACTIONS (6)
  - Sepsis [Fatal]
  - Renal impairment [Unknown]
  - Shock [Fatal]
  - Renal tubular necrosis [Unknown]
  - Haemodialysis [Unknown]
  - Off label use [Unknown]

NARRATIVE: CASE EVENT DATE: 2020
